FAERS Safety Report 23673888 (Version 4)
Quarter: 2025Q2

REPORT INFORMATION
  Report Type: Spontaneous
  Country: US (occurrence: US)
  Receive Date: 20240326
  Receipt Date: 20250626
  Transmission Date: 20250717
  Serious: No
  Sender: SANOFI AVENTIS
  Company Number: US-SANOFI-01984683

PATIENT
  Age: 7 Year
  Sex: Male
  Weight: 18.68 kg

DRUGS (1)
  1. DUPIXENT [Suspect]
     Active Substance: DUPILUMAB
     Indication: Eosinophilic oesophagitis
     Dosage: 200 MG, QOW
     Route: 058
     Dates: start: 20240301

REACTIONS (4)
  - Injection site erythema [Recovered/Resolved]
  - Device issue [Unknown]
  - Accidental exposure to product [Unknown]
  - Exposure via skin contact [Unknown]
